FAERS Safety Report 12853297 (Version 1)
Quarter: 2016Q4

REPORT INFORMATION
  Report Type: Spontaneous
  Country: NL (occurrence: NL)
  Receive Date: 20161017
  Receipt Date: 20161017
  Transmission Date: 20170207
  Serious: Yes (Hospitalization, Other)
  Sender: FDA-Public Use
  Company Number: NL-TEVA-699825ACC

PATIENT
  Age: 86 Year
  Sex: Female
  Weight: 62 kg

DRUGS (9)
  1. BUMETANIDE TABLET 1MG [Concomitant]
     Dosage: 1 MILLIGRAM DAILY; 1 MG ONCE DAILY, ADDITIONAL INFORMATION: START DATE UNKNOWN
     Route: 048
     Dates: end: 20160928
  2. ISOSORBIDEDINITRAAT TABLET SUBLINGUAAL 5MG [Concomitant]
     Dosage: SUBLINGUAL TABLET, IF NEEDED, ADDITIONAL INFORMATION: START DATE UNKNOWN
     Route: 048
  3. CARBASALAATCALCIUM POEDER 100MG [Concomitant]
     Route: 048
  4. SITAGLIPTINE TABLET  50MG [Concomitant]
     Dosage: 50 MILLIGRAM DAILY; 50 MG ONCE DAILY, ADDITIONAL INFORMATION: START DATE UNKNOWN
     Route: 048
  5. METOPROLOL TABLET MGA  50MG (SUCCINAAT) [Concomitant]
     Dosage: 50 MILLIGRAM DAILY; 50 MG ONCE DAILY, ADDITIONAL INFORMATION: START DATE UNKNOWN
     Route: 048
  6. ROSUVASTATINE TABLET FO 20MG (ALS CA-ZOUT) [Concomitant]
     Dosage: 20 MILLIGRAM DAILY; 20 MG ONCE DAILY, ADDITIONAL INFORMATION: START DATE UNKNOWN
     Route: 048
  7. OMEPRAZOL CAPSULE MGA 10MG [Concomitant]
     Route: 048
  8. METFORMIN [Suspect]
     Active Substance: METFORMIN HYDROCHLORIDE
     Indication: DIABETES MELLITUS
     Dosage: 4 TIMES PER DAY 1 PIECE(S), ADDITIONAL INFORMATION: 2 TIMES DAILY 500MG AND ONCE DAILY 1000MG
     Route: 048
     Dates: start: 2016
  9. EPROSARTAN TABLET OMHULD 600MG [Concomitant]
     Dosage: 600 MILLIGRAM DAILY; ONCE DAILY, 600 MG DAILY,ADDITIONAL INFORMATION: START DATE UNKNOWN
     Route: 048

REACTIONS (5)
  - Blood potassium decreased [Unknown]
  - Enterocolitis [Unknown]
  - Rectal haemorrhage [Unknown]
  - Urinary tract infection [Unknown]
  - Diarrhoea [Recovered/Resolved]

NARRATIVE: CASE EVENT DATE: 20160906
